FAERS Safety Report 9766432 (Version 1)
Quarter: 2013Q4

REPORT INFORMATION
  Report Type: Spontaneous
  Country: US (occurrence: None)
  Receive Date: 20131213
  Receipt Date: 20131213
  Transmission Date: 20140711
  Serious: Yes (Other)
  Sender: FDA-Public Use
  Company Number: 2013SA028932

PATIENT
  Age: 53 Year
  Sex: Male

DRUGS (4)
  1. GOLD BOND FOOT ROLL ON [Suspect]
     Indication: PRODUCT USED FOR UNKNOWN INDICATION
     Dates: start: 20110306
  2. LISINOPRIL [Concomitant]
  3. LIPITOR [Concomitant]
  4. AVINZA [Concomitant]

REACTIONS (3)
  - Blister [None]
  - Thermal burn [None]
  - Pain in extremity [None]
